FAERS Safety Report 23966895 (Version 1)
Quarter: 2024Q2

REPORT INFORMATION
  Report Type: Spontaneous
  Country: US (occurrence: US)
  Receive Date: 20240612
  Receipt Date: 20240612
  Transmission Date: 20240715
  Serious: No
  Sender: FDA-Public Use
  Company Number: US-AMGEN-USASP2024115622

PATIENT
  Age: 69 Year
  Sex: Female

DRUGS (3)
  1. TEPEZZA [Suspect]
     Active Substance: TEPROTUMUMAB-TRBW
     Indication: Toxic goitre
     Dosage: 930 MILLIGRAM, Q3WK (WEEK 0 FIRST INFUSION)
     Route: 042
     Dates: start: 20240404
  2. TEPEZZA [Suspect]
     Active Substance: TEPROTUMUMAB-TRBW
     Indication: Endocrine ophthalmopathy
     Dosage: SECOND INFUSION
     Route: 042
     Dates: start: 2024
  3. TEPEZZA [Suspect]
     Active Substance: TEPROTUMUMAB-TRBW
     Dosage: 930 MILLIGRAM, Q3WK (WEEK 0 FIRST INFUSION)
     Route: 042
     Dates: start: 20240404

REACTIONS (3)
  - Influenza like illness [Recovering/Resolving]
  - Bowel movement irregularity [Not Recovered/Not Resolved]
  - Lethargy [Recovering/Resolving]

NARRATIVE: CASE EVENT DATE: 20240406
